FAERS Safety Report 6511611-1 (Version None)
Quarter: 2009Q4

REPORT INFORMATION
  Report Type: 
  Country: None (occurrence: None)
  Receive Date: 20091222
  Receipt Date: 20090428
  Transmission Date: 20100525
  Serious: No
  Sender: FDA-Public Use
  Company Number: US-ASTRAZENECA-2009UW10612

PATIENT
  Age: 62 Year
  Sex: Male
  Weight: 82.1 kg

DRUGS (4)
  1. CRESTOR [Suspect]
     Route: 048
     Dates: start: 20050101
  2. ATENOLOL [Concomitant]
     Indication: HYPERTENSION
  3. PLAVIX [Concomitant]
     Indication: CARDIAC DISORDER
  4. ASPIRIN [Concomitant]
     Indication: CARDIAC DISORDER

REACTIONS (1)
  - LOW DENSITY LIPOPROTEIN INCREASED [None]
